FAERS Safety Report 6822133-2 (Version None)
Quarter: 2010Q3

REPORT INFORMATION
  Report Type: 
  Country: None (occurrence: None)
  Receive Date: 20100706
  Receipt Date: 20100621
  Transmission Date: 20110219
  Serious: Yes (Other)
  Sender: FDA-Public Use
  Company Number: 1000014836

PATIENT
  Sex: Male

DRUGS (4)
  1. ESCITALOPRAM OXALATE [Suspect]
     Dosage: 110 MG (110 MG, 1 IN 1 D)
  2. BUSPAR [Suspect]
  3. NEURONTIN [Suspect]
  4. LYRICA [Suspect]

REACTIONS (3)
  - FAECAL INCONTINENCE [None]
  - OVERDOSE [None]
  - URINARY INCONTINENCE [None]
